FAERS Safety Report 18393483 (Version 2)
Quarter: 2020Q4

REPORT INFORMATION
  Report Type: Report from Study
  Country: US (occurrence: US)
  Receive Date: 20201016
  Receipt Date: 20201125
  Transmission Date: 20210114
  Serious: No
  Sender: FDA-Public Use
  Company Number: US-TAKEDA-2020TUS042556

PATIENT
  Sex: Male
  Weight: 57 kg

DRUGS (1)
  1. VEDOLIZUMAB [Suspect]
     Active Substance: VEDOLIZUMAB
     Indication: CROHN^S DISEASE
     Dosage: 300 MILLIGRAM
     Route: 042
     Dates: start: 2019

REACTIONS (8)
  - Urinary tract disorder [Unknown]
  - Chest discomfort [Unknown]
  - Illness [Unknown]
  - Constipation [Unknown]
  - Productive cough [Unknown]
  - Chest pain [Unknown]
  - Fatigue [Unknown]
  - Myalgia [Unknown]
